FAERS Safety Report 25143132 (Version 1)
Quarter: 2025Q2

REPORT INFORMATION
  Report Type: Spontaneous
  Country: JP (occurrence: JP)
  Receive Date: 20250401
  Receipt Date: 20250401
  Transmission Date: 20250717
  Serious: Yes (Other)
  Sender: GLAXOSMITHKLINE
  Company Number: JP-GSK-JP2025JPN035540

PATIENT

DRUGS (4)
  1. LAMICTAL [Suspect]
     Active Substance: LAMOTRIGINE
  2. LURASIDONE [Suspect]
     Active Substance: LURASIDONE
  3. LITHIUM CARBONATE [Suspect]
     Active Substance: LITHIUM CARBONATE
  4. QUETIAPINE [Suspect]
     Active Substance: QUETIAPINE

REACTIONS (1)
  - Drug reaction with eosinophilia and systemic symptoms [Unknown]
